FAERS Safety Report 7129650-9 (Version None)
Quarter: 2010Q4

REPORT INFORMATION
  Report Type: 
  Country: None (occurrence: None)
  Receive Date: 20101130
  Receipt Date: 20101120
  Transmission Date: 20110411
  Serious: Yes (Other)
  Sender: FDA-Public Use
  Company Number: US-ABBOTT-10P-163-0687552-00

PATIENT
  Sex: Female
  Weight: 90.8 kg

DRUGS (13)
  1. HUMIRA [Suspect]
     Indication: CROHN'S DISEASE
     Route: 058
     Dates: start: 20100217, end: 20100915
  2. HUMIRA [Suspect]
     Dates: start: 20101119
  3. MERCAPTOPURINE [Concomitant]
     Indication: PRODUCT USED FOR UNKNOWN INDICATION
     Dosage: 100MG DAILY
     Route: 048
  4. CELEBREX [Concomitant]
     Indication: RHEUMATOID ARTHRITIS
     Route: 048
  5. PRO BIOTIC PEARL [Concomitant]
     Indication: PRODUCT USED FOR UNKNOWN INDICATION
  6. VITAMIN D [Concomitant]
     Indication: PRODUCT USED FOR UNKNOWN INDICATION
     Dosage: 2000MG DAILY
  7. FERGON [Concomitant]
     Indication: PRODUCT USED FOR UNKNOWN INDICATION
     Dosage: 27MG DAILY
     Route: 048
  8. ESTER C [Concomitant]
     Indication: PRODUCT USED FOR UNKNOWN INDICATION
     Dosage: 50MG DAILY
     Route: 048
  9. METANEX [Concomitant]
     Indication: PRODUCT USED FOR UNKNOWN INDICATION
  10. TYLENOL (CAPLET) [Concomitant]
     Indication: PRODUCT USED FOR UNKNOWN INDICATION
  11. MULTI-VITAMIN [Concomitant]
     Indication: PRODUCT USED FOR UNKNOWN INDICATION
  12. BENADRYL [Concomitant]
     Indication: PRURITUS
     Route: 048
  13. LOW ACID ORANGE JUICE [Concomitant]
     Indication: PRODUCT USED FOR UNKNOWN INDICATION

REACTIONS (13)
  - BLADDER SPASM [None]
  - COUGH [None]
  - CYSTITIS [None]
  - HEADACHE [None]
  - MENORRHAGIA [None]
  - OVARIAN CYST [None]
  - POSTOPERATIVE WOUND INFECTION [None]
  - PRURITUS [None]
  - PYODERMA GANGRENOSUM [None]
  - PYREXIA [None]
  - RHEUMATOID ARTHRITIS [None]
  - SNEEZING [None]
  - WEIGHT INCREASED [None]
